FAERS Safety Report 4458032-3 (Version None)
Quarter: 2004Q3

REPORT INFORMATION
  Report Type: 
  Country: None (occurrence: None)
  Receive Date: 20040922
  Receipt Date: 20040902
  Transmission Date: 20050211
  Serious: Yes (Death, Hospitalization)
  Sender: FDA-Public Use
  Company Number: A02200402651

PATIENT
  Age: 81 Year
  Sex: Male

DRUGS (12)
  1. PLAVIX [Suspect]
     Dosage: ORAL
     Route: 048
     Dates: start: 20040729, end: 20040801
  2. FRAXODI - (NADROPARIN CALCIUM) - SOLUTION [Suspect]
     Dosage: SUBCUTANEOUS
     Route: 058
     Dates: start: 20040801, end: 20040803
  3. KARDEGIC - (ACETYLSALICYLATE LYSINE) - POWDER [Suspect]
     Dosage: ORAL
     Route: 048
     Dates: start: 20040723, end: 20040803
  4. TOPALGIC - (TRAMADOL HYDROCHLORIDE) [Suspect]
     Dosage: ORAL
     Route: 048
     Dates: start: 20040701, end: 20040803
  5. ALDACTONE [Suspect]
     Dosage: ORAL
     Route: 048
     Dates: start: 20040701, end: 20040803
  6. KALEORID - (POTASSIUM CHLORIDE) - TABLET PR [Suspect]
     Dosage: ORAL
     Route: 048
     Dates: start: 20040723, end: 20040803
  7. LASIX [Suspect]
     Dosage: ORAL
     Route: 048
     Dates: start: 20040723, end: 20040803
  8. RAMIPRIL [Suspect]
     Dosage: ORAL
     Route: 048
     Dates: start: 20040723, end: 20040803
  9. FONZYLANE - (BUFLOMEDIL HYDROCHLORIDE) [Suspect]
     Dates: start: 20040701, end: 20040803
  10. TORENTAL (PENTOXIFYLLINE) [Concomitant]
  11. DIGOXIN [Concomitant]
  12. LOVENOX [Concomitant]

REACTIONS (8)
  - CYANOSIS [None]
  - CYTOLYTIC HEPATITIS [None]
  - HEPATIC FAILURE [None]
  - HEPATITIS FULMINANT [None]
  - OEDEMA PERIPHERAL [None]
  - RENAL FAILURE ACUTE [None]
  - SHOCK [None]
  - URINARY RETENTION [None]
